FAERS Safety Report 5169019-X (Version None)
Quarter: 2006Q4

REPORT INFORMATION
  Report Type: 
  Country: None (occurrence: None)
  Receive Date: 20061204
  Receipt Date: 20061122
  Transmission Date: 20070319
  Serious: Yes (Other)
  Sender: FDA-Public Use
  Company Number: 2006145394

PATIENT
  Sex: Male

DRUGS (3)
  1. GEODON [Suspect]
     Indication: IMMUNE SYSTEM DISORDER
     Dosage: 60 MG
  2. ALL OTHER THERAPEUTIC PRODUCTS [Concomitant]
  3. ANTIBIOTICS [Concomitant]

REACTIONS (24)
  - ARTHRALGIA [None]
  - BLOOD DISORDER [None]
  - BURNING SENSATION [None]
  - CANDIDIASIS [None]
  - CARDIAC DISORDER [None]
  - DIZZINESS [None]
  - DYSPNOEA [None]
  - EAR PAIN [None]
  - EYE PAIN [None]
  - FUNGAL SKIN INFECTION [None]
  - HAEMORRHAGE [None]
  - HEADACHE [None]
  - HYPOPARATHYROIDISM [None]
  - IMMUNE SYSTEM DISORDER [None]
  - INFECTION [None]
  - LACRIMATION INCREASED [None]
  - MUSCLE SPASMS [None]
  - MUSCULOSKELETAL PAIN [None]
  - NECK PAIN [None]
  - OCULAR HYPERAEMIA [None]
  - PAIN [None]
  - PAIN IN EXTREMITY [None]
  - TONGUE HAEMORRHAGE [None]
  - WEIGHT DECREASED [None]
